FAERS Safety Report 7469366-2 (Version None)
Quarter: 2011Q2

REPORT INFORMATION
  Report Type: 
  Country: None (occurrence: None)
  Receive Date: 20110510
  Receipt Date: 20101217
  Transmission Date: 20111010
  Serious: Yes (Hospitalization, Other)
  Sender: FDA-Public Use
  Company Number: US-BAYER-201017008NA

PATIENT
  Age: 47 Year
  Sex: Female
  Weight: 77 kg

DRUGS (6)
  1. YASMIN [Suspect]
     Indication: CONTRACEPTION
     Dosage: LOT NUMBERS: 34069A-51178A-81333A-42112A-54267A, EXP. DATES: 11/06, 1/06, 02/13, 5/07, 11/08
     Route: 048
     Dates: start: 20050101, end: 20090101
  2. FUROSEMIDE [Concomitant]
     Route: 048
  3. WARFARIN [Concomitant]
     Route: 048
  4. YAZ [Suspect]
     Indication: CONTRACEPTION
     Dosage: LOT NUMBERS: 34069A-51178A-81333A-42112A-54267A, EXP. DATES: 11/06, 1/06, 02/13, 5/07, 11/08
     Route: 048
     Dates: start: 20050101, end: 20090101
  5. PREDNISONE [Concomitant]
     Indication: POLYCHONDRITIS
     Route: 065
     Dates: start: 20050101, end: 20100101
  6. LEXAPRO [Concomitant]
     Indication: ANXIETY
     Dosage: 10 MG, QD
     Route: 048

REACTIONS (12)
  - ANXIETY [None]
  - SENSATION OF HEAVINESS [None]
  - PAIN [None]
  - ERYTHEMA [None]
  - HEADACHE [None]
  - THROMBOPHLEBITIS SUPERFICIAL [None]
  - PAIN IN EXTREMITY [None]
  - POST THROMBOTIC SYNDROME [None]
  - OEDEMA PERIPHERAL [None]
  - FATIGUE [None]
  - INTRACRANIAL VENOUS SINUS THROMBOSIS [None]
  - DEPRESSION [None]
